FAERS Safety Report 4684504-2 (Version None)
Quarter: 2005Q2

REPORT INFORMATION
  Report Type: 
  Country: None (occurrence: None)
  Receive Date: 20050531
  Receipt Date: 20041019
  Transmission Date: 20051028
  Serious: Yes (Hospitalization)
  Sender: FDA-Public Use
  Company Number: US_0409105461

PATIENT
  Age: 55 Year
  Sex: Female

DRUGS (2)
  1. ZYPREXA [Suspect]
     Indication: MOOD ALTERED
     Dosage: 5 MG/2 DAY
     Dates: start: 20030928
  2. CLOZAPINE [Concomitant]

REACTIONS (1)
  - HALLUCINATION [None]
